FAERS Safety Report 5677572-2 (Version None)
Quarter: 2008Q1

REPORT INFORMATION
  Report Type: 
  Country: None (occurrence: None)
  Receive Date: 20080324
  Receipt Date: 20080312
  Transmission Date: 20080703
  Serious: Yes (Other)
  Sender: FDA-Public Use
  Company Number: CA-PURDUE-CAN_2008_0000540

PATIENT
  Age: 27 Year
  Sex: Female

DRUGS (4)
  1. OXYCONTIN [Suspect]
     Indication: DRUG USE FOR UNKNOWN INDICATION
  2. MORPHINE SULFATE [Suspect]
     Indication: DRUG USE FOR UNKNOWN INDICATION
  3. MARIJUANA [Suspect]
     Indication: DRUG USE FOR UNKNOWN INDICATION
     Route: 055
  4. ATASOL [Suspect]
     Indication: DRUG USE FOR UNKNOWN INDICATION
     Route: 045

REACTIONS (3)
  - POLYSUBSTANCE DEPENDENCE [None]
  - SUBSTANCE ABUSE [None]
  - WEIGHT DECREASED [None]
